FAERS Safety Report 20671725 (Version 1)
Quarter: 2022Q2

REPORT INFORMATION
  Report Type: Spontaneous
  Country: US (occurrence: US)
  Receive Date: 20220405
  Receipt Date: 20220405
  Transmission Date: 20220721
  Serious: Yes (Other)
  Sender: FDA-Public Use
  Company Number: US-AUROBINDO-AUR-APL-2022-009636

PATIENT
  Age: 15 Year
  Sex: Male

DRUGS (8)
  1. PAROXETINE [Suspect]
     Active Substance: PAROXETINE
     Indication: Major depression
     Dosage: UNK
     Route: 065
  2. DIAZEPAM [Concomitant]
     Active Substance: DIAZEPAM
     Indication: Genital pain
     Dosage: UNK
     Route: 065
  3. MELOXICAM [Concomitant]
     Active Substance: MELOXICAM
     Indication: Genital pain
     Dosage: UNK
     Route: 065
  4. GABAPENTIN [Concomitant]
     Active Substance: GABAPENTIN
     Indication: Genital pain
     Dosage: UNK
     Route: 065
  5. CELECOXIB [Concomitant]
     Active Substance: CELECOXIB
     Indication: Genital pain
     Dosage: UNK
     Route: 065
  6. CARBAMAZEPINE [Concomitant]
     Active Substance: CARBAMAZEPINE
     Indication: Genital pain
     Dosage: UNK
     Route: 065
  7. VALIUM [Concomitant]
     Active Substance: DIAZEPAM
     Indication: Product used for unknown indication
     Dosage: UNK
     Route: 054
  8. DULOXETINE [Concomitant]
     Active Substance: DULOXETINE
     Indication: Persistent genital arousal disorder
     Dosage: UNK
     Route: 065

REACTIONS (2)
  - Ejaculation delayed [Unknown]
  - Constipation [Unknown]
